FAERS Safety Report 20974063 (Version 4)
Quarter: 2024Q4

REPORT INFORMATION
  Report Type: Report from Study
  Country: CA (occurrence: None)
  Receive Date: 20220617
  Receipt Date: 20241224
  Transmission Date: 20250115
  Serious: Yes (Hospitalization, Other)
  Sender: ORION
  Company Number: CA-PFIZER INC-2020086296

PATIENT
  Age: 64 Year
  Sex: Male
  Weight: 91 kg

DRUGS (17)
  1. METHOTREXATE [Suspect]
     Active Substance: METHOTREXATE
     Indication: Psoriasis
  2. METHOTREXATE [Suspect]
     Active Substance: METHOTREXATE
  3. METHOTREXATE [Suspect]
     Active Substance: METHOTREXATE
  4. COSENTYX [Suspect]
     Active Substance: SECUKINUMAB
     Indication: Psoriasis
  5. COSENTYX [Suspect]
     Active Substance: SECUKINUMAB
  6. GUSELKUMAB [Suspect]
     Active Substance: GUSELKUMAB
     Indication: Product used for unknown indication
  7. BETADERM [Concomitant]
     Active Substance: BETAMETHASONE VALERATE
     Indication: Psoriasis
  8. BETADERM [Concomitant]
     Active Substance: BETAMETHASONE VALERATE
  9. IXEKIZUMAB [Concomitant]
     Active Substance: IXEKIZUMAB
     Indication: Psoriasis
  10. IXEKIZUMAB [Concomitant]
     Active Substance: IXEKIZUMAB
  11. IXEKIZUMAB [Concomitant]
     Active Substance: IXEKIZUMAB
  12. VALPROATE SODIUM [Concomitant]
     Active Substance: VALPROATE SODIUM
  13. BRODALUMAB [Concomitant]
     Active Substance: BRODALUMAB
  14. INFLIXIMAB [Concomitant]
     Active Substance: INFLIXIMAB
     Indication: Psoriasis
  15. INFLIXIMAB [Concomitant]
     Active Substance: INFLIXIMAB
  16. INFLIXIMAB [Concomitant]
     Active Substance: INFLIXIMAB
  17. INFLIXIMAB [Concomitant]
     Active Substance: INFLIXIMAB

REACTIONS (17)
  - Drug ineffective [Recovered/Resolved]
  - Back pain [Not Recovered/Not Resolved]
  - Craniocerebral injury [Recovered/Resolved]
  - Craniofacial fracture [Recovered/Resolved]
  - Fall [Recovered/Resolved]
  - Hypokinesia [Recovered/Resolved]
  - Jaw fracture [Recovered/Resolved]
  - Muscle strain [Recovered/Resolved]
  - Psoriasis [Recovered/Resolved]
  - Pelvic fracture [Not Recovered/Not Resolved]
  - Chest pain [Not Recovered/Not Resolved]
  - Gout [Recovered/Resolved]
  - Hypertension [Recovered/Resolved]
  - Pericardial effusion [Not Recovered/Not Resolved]
  - Pleural effusion [Not Recovered/Not Resolved]
  - Pleurisy [Not Recovered/Not Resolved]
  - Vitamin B1 deficiency [Recovered/Resolved]
